FAERS Safety Report 12248314 (Version 1)
Quarter: 2016Q2

REPORT INFORMATION
  Report Type: Spontaneous
  Country: US (occurrence: None)
  Receive Date: 20160407
  Receipt Date: 20160407
  Transmission Date: 20160815
  Serious: Yes (Other)
  Sender: FDA-Public Use
  Company Number: None

PATIENT
  Age: 43 Year
  Sex: Female
  Weight: 52.16 kg

DRUGS (1)
  1. KENALOG [Suspect]
     Active Substance: TRIAMCINOLONE ACETONIDE
     Indication: SEASONAL ALLERGY
     Dates: start: 20150925

REACTIONS (4)
  - Injection site reaction [None]
  - Musculoskeletal pain [None]
  - Pain in extremity [None]
  - Injection site discolouration [None]

NARRATIVE: CASE EVENT DATE: 20150925
